FAERS Safety Report 9250553 (Version 1)
Quarter: 2013Q1

REPORT INFORMATION
  Report Type: Spontaneous
  Country: US (occurrence: None)
  Receive Date: 20130305
  Receipt Date: 20130305
  Transmission Date: 20140127
  Serious: Yes (Disabling, Other)
  Sender: FDA-Public Use
  Company Number: 163-21880-12040488

PATIENT
  Age: 77 Year
  Sex: Female

DRUGS (2)
  1. REVLIMID [Suspect]
     Indication: PLASMA CELL MYELOMA
     Dosage: 15MG, DAILY FOR 21 DAYS, 7 DAYS REST, PO
     Route: 048
     Dates: start: 20111107
  2. OXYCONTIN (OXYCODONE HYDROCHLORIDE) [Concomitant]

REACTIONS (2)
  - Pelvic fracture [None]
  - Fall [None]
